FAERS Safety Report 4627937-2 (Version None)
Quarter: 2005Q2

REPORT INFORMATION
  Report Type: 
  Country: None (occurrence: None)
  Receive Date: 20050401
  Receipt Date: 20050323
  Transmission Date: 20051028
  Serious: Yes (Hospitalization)
  Sender: FDA-Public Use
  Company Number: 2005JP000084

PATIENT
  Age: 38 Year
  Sex: Male
  Weight: 68 kg

DRUGS (27)
  1. TACROLIMUS CAPSULES (TACROLIMUS CAPSULES) [Suspect]
     Indication: RENAL TRANSPLANT
     Dosage: SEE IMAGE
     Route: 048
     Dates: start: 20040902, end: 20040902
  2. TACROLIMUS CAPSULES (TACROLIMUS CAPSULES) [Suspect]
     Indication: RENAL TRANSPLANT
     Dosage: SEE IMAGE
     Route: 048
     Dates: start: 20040903, end: 20040903
  3. TACROLIMUS CAPSULES (TACROLIMUS CAPSULES) [Suspect]
     Indication: RENAL TRANSPLANT
     Dosage: SEE IMAGE
     Route: 048
     Dates: start: 20040904, end: 20040905
  4. TACROLIMUS CAPSULES (TACROLIMUS CAPSULES) [Suspect]
     Indication: RENAL TRANSPLANT
     Dosage: SEE IMAGE
     Route: 048
     Dates: start: 20040906, end: 20040906
  5. TACROLIMUS CAPSULES (TACROLIMUS CAPSULES) [Suspect]
     Indication: RENAL TRANSPLANT
     Dosage: SEE IMAGE
     Route: 048
     Dates: start: 20040907, end: 20040907
  6. TACROLIMUS CAPSULES (TACROLIMUS CAPSULES) [Suspect]
     Indication: RENAL TRANSPLANT
     Dosage: SEE IMAGE
     Route: 048
     Dates: start: 20040908, end: 20040908
  7. TACROLIMUS CAPSULES (TACROLIMUS CAPSULES) [Suspect]
     Indication: RENAL TRANSPLANT
     Dosage: SEE IMAGE
     Route: 048
     Dates: start: 20040909, end: 20040912
  8. TACROLIMUS CAPSULES (TACROLIMUS CAPSULES) [Suspect]
     Indication: RENAL TRANSPLANT
     Dosage: SEE IMAGE
     Route: 048
     Dates: start: 20040913, end: 20040913
  9. TACROLIMUS CAPSULES (TACROLIMUS CAPSULES) [Suspect]
     Indication: RENAL TRANSPLANT
     Dosage: SEE IMAGE
     Route: 048
     Dates: start: 20040914, end: 20040915
  10. TACROLIMUS CAPSULES (TACROLIMUS CAPSULES) [Suspect]
     Indication: RENAL TRANSPLANT
     Dosage: SEE IMAGE
     Route: 048
     Dates: start: 20040916, end: 20040930
  11. TACROLIMUS CAPSULES (TACROLIMUS CAPSULES) [Suspect]
     Indication: RENAL TRANSPLANT
     Dosage: SEE IMAGE
     Route: 048
     Dates: start: 20041001, end: 20041014
  12. TACROLIMUS CAPSULES (TACROLIMUS CAPSULES) [Suspect]
     Indication: RENAL TRANSPLANT
     Dosage: SEE IMAGE
     Route: 048
     Dates: start: 20041015, end: 20041015
  13. TACROLIMUS CAPSULES (TACROLIMUS CAPSULES) [Suspect]
     Indication: RENAL TRANSPLANT
     Dosage: SEE IMAGE
     Route: 048
     Dates: start: 20041018, end: 20041020
  14. TACROLIMUS CAPSULES (TACROLIMUS CAPSULES) [Suspect]
     Indication: RENAL TRANSPLANT
     Dosage: SEE IMAGE
     Route: 048
     Dates: start: 20041021, end: 20041111
  15. TACROLIMUS CAPSULES (TACROLIMUS CAPSULES) [Suspect]
     Indication: RENAL TRANSPLANT
     Dosage: SEE IMAGE
     Route: 048
     Dates: start: 20041112, end: 20041129
  16. TACROLIMUS CAPSULES (TACROLIMUS CAPSULES) [Suspect]
     Indication: RENAL TRANSPLANT
     Dosage: SEE IMAGE
     Route: 048
     Dates: start: 20041130, end: 20041215
  17. TACROLIMUS CAPSULES (TACROLIMUS CAPSULES) [Suspect]
     Indication: RENAL TRANSPLANT
     Dosage: SEE IMAGE
     Route: 048
     Dates: start: 20041216
  18. CELLCEPT [Suspect]
     Indication: RENAL TRANSPLANT
     Dosage: SEE IMAGE
     Route: 048
     Dates: start: 20040902, end: 20040915
  19. CELLCEPT [Suspect]
     Indication: RENAL TRANSPLANT
     Dosage: SEE IMAGE
     Route: 048
     Dates: start: 20040916, end: 20041212
  20. CELLCEPT [Suspect]
     Indication: RENAL TRANSPLANT
     Dosage: SEE IMAGE
     Route: 048
     Dates: start: 20041213, end: 20041213
  21. CELLCEPT [Suspect]
     Indication: RENAL TRANSPLANT
     Dosage: SEE IMAGE
     Route: 048
     Dates: start: 20050105
  22. PREDNISONE [Concomitant]
     Indication: RENAL TRANSPLANT
     Dosage: SEE IMAGE
     Route: 048
     Dates: start: 20040902, end: 20041215
  23. PREDNISONE [Concomitant]
     Indication: RENAL TRANSPLANT
     Dosage: SEE IMAGE
     Route: 048
     Dates: start: 20041226
  24. ISONIAZID [Concomitant]
  25. PYDOXAL (PYRIDOXAL PHOSPHATE) [Concomitant]
  26. MUCOSTA (REBAMIPIDE) [Concomitant]
  27. ISODINE (POVIDONE-IODINE) [Concomitant]

REACTIONS (3)
  - FOLATE DEFICIENCY [None]
  - INFECTION IN AN IMMUNOCOMPROMISED HOST [None]
  - PNEUMOCYSTIS JIROVECI PNEUMONIA [None]
